FAERS Safety Report 9625528 (Version 1)
Quarter: 2013Q4

REPORT INFORMATION
  Report Type: Spontaneous
  Country: US (occurrence: None)
  Receive Date: 20131015
  Receipt Date: 20131015
  Transmission Date: 20140711
  Serious: Yes (Other)
  Sender: FDA-Public Use
  Company Number: None

PATIENT
  Age: 81 Year
  Sex: Male
  Weight: 94.8 kg

DRUGS (2)
  1. MIRTAZAPINE [Suspect]
     Indication: DEPRESSION
     Dosage: 1/2 PILL QHS/BEDTIME ORAL
     Route: 048
     Dates: start: 20131002, end: 20131005
  2. MIRTAZAPINE [Suspect]
     Indication: INSOMNIA
     Dosage: 1/2 PILL QHS/BEDTIME ORAL
     Route: 048
     Dates: start: 20131002, end: 20131005

REACTIONS (3)
  - Parasomnia [None]
  - Physical assault [None]
  - Abnormal dreams [None]
